FAERS Safety Report 18585131 (Version 1)
Quarter: 2020Q4

REPORT INFORMATION
  Report Type: Spontaneous
  Country: US (occurrence: US)
  Receive Date: 20201204
  Receipt Date: 20201204
  Transmission Date: 20210114
  Serious: Yes (Hospitalization)
  Sender: FDA-Public Use
  Company Number: None

PATIENT
  Age: 13 Year
  Sex: Male
  Weight: 72.8 kg

DRUGS (19)
  1. HYDROXYZINE [Concomitant]
     Active Substance: HYDROXYZINE HYDROCHLORIDE
  2. MORPHINE [Concomitant]
     Active Substance: MORPHINE
  3. CYTARABINE. [Suspect]
     Active Substance: CYTARABINE
     Dates: end: 20201103
  4. GENTAMICIN. [Concomitant]
     Active Substance: GENTAMICIN
  5. ETOPOSIDE (VP-16) [Suspect]
     Active Substance: ETOPOSIDE
     Dates: end: 20201103
  6. HYDROCORTISONE. [Suspect]
     Active Substance: HYDROCORTISONE
     Dates: end: 20201023
  7. ACETAMINOPHEN. [Concomitant]
     Active Substance: ACETAMINOPHEN
  8. DOCUSATE [Concomitant]
     Active Substance: DOCUSATE
  9. ISAVUCONAZONIUM SUFLATE [Concomitant]
  10. DAPTOMYCIN. [Concomitant]
     Active Substance: DAPTOMYCIN
  11. MEPERIDINE [Concomitant]
     Active Substance: MEPERIDINE
  12. MEROPENEM. [Concomitant]
     Active Substance: MEROPENEM
  13. MICAFUNGIN. [Concomitant]
     Active Substance: MICAFUNGIN SODIUM
  14. FENTANYL. [Concomitant]
     Active Substance: FENTANYL
  15. LORAZEPAM. [Concomitant]
     Active Substance: LORAZEPAM
  16. METHOTREXATE. [Suspect]
     Active Substance: METHOTREXATE
     Dates: end: 20201023
  17. DIPHENHYDRAMINE. [Concomitant]
     Active Substance: DIPHENHYDRAMINE
  18. HEPARIN [Concomitant]
     Active Substance: HEPARIN SODIUM
  19. ONDANSETRON [Concomitant]
     Active Substance: ONDANSETRON

REACTIONS (5)
  - Sepsis [None]
  - Febrile neutropenia [None]
  - Respiratory distress [None]
  - Colitis [None]
  - Hypovolaemic shock [None]

NARRATIVE: CASE EVENT DATE: 20201120
